FAERS Safety Report 4384159-0 (Version None)
Quarter: 2004Q2

REPORT INFORMATION
  Report Type: 
  Country: None (occurrence: None)
  Receive Date: 20040624
  Receipt Date: 20040614
  Transmission Date: 20050107
  Serious: Yes (Hospitalization, Other)
  Sender: FDA-Public Use
  Company Number: US-AMGEN-US079335

PATIENT
  Sex: Female
  Weight: 80 kg

DRUGS (14)
  1. EPOGEN [Suspect]
     Indication: RENAL FAILURE CHRONIC
     Dates: start: 20031201
  2. CYTOXAN [Concomitant]
     Dates: start: 20031201, end: 20040501
  3. ATIVAN [Concomitant]
  4. LOPRESSOR [Concomitant]
  5. FENTANYL [Concomitant]
  6. CLONIDINE HCL [Concomitant]
  7. METHYLPREDNISOLONE [Concomitant]
  8. PROTONIX [Concomitant]
  9. COGENTIN [Concomitant]
  10. RISPERDAL [Concomitant]
  11. HYDRALAZINE HCL [Concomitant]
  12. AMLODIPINE [Concomitant]
  13. INSULIN [Concomitant]
  14. OLANZAPINE [Concomitant]

REACTIONS (3)
  - BONE MARROW DEPRESSION [None]
  - INTESTINAL PERFORATION [None]
  - PANCYTOPENIA [None]
